FAERS Safety Report 4611127-3 (Version None)
Quarter: 2005Q1

REPORT INFORMATION
  Report Type: 
  Country: None (occurrence: None)
  Receive Date: 20050317
  Receipt Date: 20050119
  Transmission Date: 20050727
  Serious: Yes (Life-Threatening, Hospitalization)
  Sender: FDA-Public Use
  Company Number: FR-ABBOTT-05P-056-0287323-00

PATIENT
  Sex: Female
  Weight: 105 kg

DRUGS (6)
  1. LIPANTHYL TABLETS [Suspect]
     Indication: MIXED HYPERLIPIDAEMIA
     Route: 048
     Dates: start: 20030201, end: 20041021
  2. VALSARTAN [Concomitant]
     Indication: DRUG USE FOR UNKNOWN INDICATION
     Dates: start: 20010101
  3. VERAPAMIL HYDROCHLORIDE [Concomitant]
     Indication: DRUG USE FOR UNKNOWN INDICATION
     Dates: start: 20010101
  4. ZOLPIDEM [Concomitant]
     Indication: INSOMNIA
  5. PARACETAMOL [Concomitant]
     Indication: DRUG USE FOR UNKNOWN INDICATION
  6. LACTULOSE [Concomitant]
     Indication: CONSTIPATION
     Dates: start: 20030101

REACTIONS (2)
  - BLOOD CHOLESTEROL INCREASED [None]
  - OEDEMATOUS PANCREATITIS [None]
